FAERS Safety Report 16333710 (Version 1)
Quarter: 2019Q2

REPORT INFORMATION
  Report Type: Spontaneous
  Country: US (occurrence: US)
  Receive Date: 20190520
  Receipt Date: 20190520
  Transmission Date: 20190711
  Serious: Yes (Disabling, Other)
  Sender: FDA-Public Use
  Company Number: US-TORRENT-00008691

PATIENT
  Sex: Male

DRUGS (2)
  1. LOSARTAN. [Suspect]
     Active Substance: LOSARTAN
     Indication: HYPERTENSION
  2. LISINOPRIL. [Concomitant]
     Active Substance: LISINOPRIL
     Indication: PRODUCT USED FOR UNKNOWN INDICATION
     Dosage: UNKNOWN

REACTIONS (5)
  - Deafness unilateral [Unknown]
  - Loss of employment [Unknown]
  - Ear infection [Unknown]
  - Neoplasm [Unknown]
  - Mental disorder [Unknown]
